FAERS Safety Report 23874650 (Version 1)
Quarter: 2024Q2

REPORT INFORMATION
  Report Type: Spontaneous
  Country: US (occurrence: None)
  Receive Date: 20240517
  Receipt Date: 20240517
  Transmission Date: 20240716
  Serious: Yes (Death)
  Sender: FDA-Public Use
  Company Number: None

PATIENT
  Sex: Male

DRUGS (12)
  1. TOLVAPTAN [Suspect]
     Active Substance: TOLVAPTAN
     Indication: Hyponatraemia
     Dosage: FREQUENCY : DAILY;?
     Route: 048
     Dates: start: 20240417, end: 20240516
  2. ASPIRIN [Concomitant]
     Active Substance: ASPIRIN
  3. BUMEX [Concomitant]
     Active Substance: BUMETANIDE
  4. DOBUTAMINE [Concomitant]
     Active Substance: DOBUTAMINE HYDROCHLORIDE
  5. EPLERENONE [Concomitant]
     Active Substance: EPLERENONE
  6. Isosorbine mononitrate [Concomitant]
  7. LINZESS [Concomitant]
     Active Substance: LINACLOTIDE
  8. OMEGA-3 ACIDS [Concomitant]
     Active Substance: OMEGA-3 FATTY ACIDS
  9. ONDANSETRON [Concomitant]
     Active Substance: ONDANSETRON
  10. SINGULAIR [Concomitant]
     Active Substance: MONTELUKAST SODIUM
  11. TYLENOL [Concomitant]
     Active Substance: ACETAMINOPHEN
  12. VITAMIN B12 [Concomitant]
     Active Substance: CYANOCOBALAMIN

REACTIONS (1)
  - Death [None]
